FAERS Safety Report 21340299 (Version 1)
Quarter: 2022Q3

REPORT INFORMATION
  Report Type: Spontaneous
  Country: US (occurrence: None)
  Receive Date: 20220915
  Receipt Date: 20220915
  Transmission Date: 20221026
  Serious: Yes (Hospitalization)
  Sender: FDA-Public Use
  Company Number: None

PATIENT
  Sex: Female

DRUGS (34)
  1. HUMIRA [Suspect]
     Active Substance: ADALIMUMAB
     Indication: Rheumatoid arthritis
     Dosage: FREQUENCY : AS DIRECTED;?INJECT 1 PEN UNDER THE SKIN (SUBCUTANEOUS INJECTION) EVERY TWO WEEKS IN THE
     Route: 058
     Dates: start: 20210909
  2. HUMIRA [Suspect]
     Active Substance: ADALIMUMAB
     Dosage: OTHER QUANTITY : 1 PEN;?FREQUENCY : AS DIRECTED;?
     Route: 058
  3. AIMOVIG [Concomitant]
     Active Substance: ERENUMAB-AOOE
  4. ALBUTEROL AER HFA [Concomitant]
  5. ALENDRONATE [Concomitant]
     Active Substance: ALENDRONATE SODIUM
  6. ALPRAZOLAM [Concomitant]
     Active Substance: ALPRAZOLAM
  7. AZITHROMYCIN [Concomitant]
     Active Substance: AZITHROMYCIN
  8. BACLOFEN [Concomitant]
     Active Substance: BACLOFEN
     Dosage: INJECT 1 PEN UNDER THE SKIN (SUBCUTANEOUS INJECTION) EVERY TWO WEEKS IN THE ABDOMEN OR THIGH, ?ROTAT
  9. CEVIMELINE [Concomitant]
     Active Substance: CEVIMELINE
  10. COMBIVENT AER [Concomitant]
  11. CYANOCOBALAM [Concomitant]
  12. CYMBAL [Concomitant]
  13. DEXAMETH PHO [Concomitant]
  14. DEXAMETHASONE [Concomitant]
     Active Substance: DEXAMETHASONE
  15. DICLOFENAC [Concomitant]
     Active Substance: DICLOFENAC
  16. DULOXETINE [Concomitant]
     Active Substance: DULOXETINE
  17. ELIQUIS [Concomitant]
     Active Substance: APIXABAN
  18. FAMOTIDINE [Concomitant]
     Active Substance: FAMOTIDINE
  19. FINASTERIDE [Concomitant]
     Active Substance: FINASTERIDE
  20. FLUTICASONE SPR [Concomitant]
  21. GABAPENTIN [Concomitant]
     Active Substance: GABAPENTIN
  22. ACETAMINOPHEN\HYDROCODONE [Concomitant]
     Active Substance: ACETAMINOPHEN\HYDROCODONE
  23. HYDROXYCHLOROQUINE [Concomitant]
     Active Substance: HYDROXYCHLOROQUINE
  24. KENALOG [Concomitant]
     Active Substance: TRIAMCINOLONE ACETONIDE
  25. LEFLUNOMIDE [Concomitant]
     Active Substance: LEFLUNOMIDE
  26. METHYLPR [Concomitant]
  27. OXCARBAZEPINE [Concomitant]
     Active Substance: OXCARBAZEPINE
  28. OXYBUTYNIN [Concomitant]
     Active Substance: OXYBUTYNIN
  29. PREDNISONE [Concomitant]
     Active Substance: PREDNISONE
  30. QUETIAPINE [Concomitant]
     Active Substance: QUETIAPINE
  31. SEROQUEL [Concomitant]
  32. TOPIRAMATE [Concomitant]
     Active Substance: TOPIRAMATE
  33. TRAMADOL HCL [Concomitant]
     Active Substance: TRAMADOL HYDROCHLORIDE
  34. ZOFRAN [Concomitant]
     Active Substance: ONDANSETRON HYDROCHLORIDE

REACTIONS (1)
  - Pneumonia legionella [None]
